FAERS Safety Report 13701627 (Version 1)
Quarter: 2017Q2

REPORT INFORMATION
  Report Type: Spontaneous
  Country: US (occurrence: US)
  Receive Date: 20170628
  Receipt Date: 20170628
  Transmission Date: 20170830
  Serious: No
  Sender: FDA-Public Use
  Company Number: None

PATIENT
  Age: 73 Year
  Sex: Male
  Weight: 101.2 kg

DRUGS (1)
  1. TOLTERODINE TART ER 4MG CAPSULES [Suspect]
     Active Substance: TOLTERODINE TARTRATE
     Indication: HYPERTONIC BLADDER
     Dosage: ?          QUANTITY:1 CAPSULE(S);?
     Route: 048
     Dates: start: 20170617, end: 20170622

REACTIONS (5)
  - Headache [None]
  - Dry eye [None]
  - Dry mouth [None]
  - Product substitution issue [None]
  - Abdominal pain upper [None]

NARRATIVE: CASE EVENT DATE: 20170617
